FAERS Safety Report 9169361 (Version 2)
Quarter: 2013Q1

REPORT INFORMATION
  Report Type: Spontaneous
  Country: US (occurrence: US)
  Receive Date: 20130318
  Receipt Date: 20130318
  Transmission Date: 20140127
  Serious: Yes (Hospitalization, Other)
  Sender: FDA-Public Use
  Company Number: US-MYLANLABS-2012S1011401

PATIENT
  Age: 64 Year
  Sex: Male

DRUGS (1)
  1. KETOPROFEN EXTENDED-RELEASE [Suspect]
     Indication: ARTHRALGIA

REACTIONS (4)
  - Ulcer haemorrhage [Recovering/Resolving]
  - Gastric ulcer [Recovering/Resolving]
  - Malaise [Recovering/Resolving]
  - Apparent death [None]
